FAERS Safety Report 14095486 (Version 1)
Quarter: 2017Q4

REPORT INFORMATION
  Report Type: Spontaneous
  Country: DE (occurrence: DE)
  Receive Date: 20171017
  Receipt Date: 20171017
  Transmission Date: 20180321
  Serious: Yes (Life-Threatening, Other)
  Sender: FDA-Public Use
  Company Number: DE-INGENUS PHARMACEUTICALS, LLC-INF201710-000465

PATIENT
  Age: 20 Year
  Sex: Female

DRUGS (7)
  1. CLINDAMYCIN. [Suspect]
     Active Substance: CLINDAMYCIN
  2. CIPROFLOXACIN. [Concomitant]
     Active Substance: CIPROFLOXACIN
  3. CEFAZOLIN [Concomitant]
     Active Substance: CEFAZOLIN
     Route: 042
  4. ACETAMINOPHEN. [Concomitant]
     Active Substance: ACETAMINOPHEN
     Indication: PYREXIA
  5. AMOXICILLIN. [Concomitant]
     Active Substance: AMOXICILLIN
  6. PREDNISONE. [Concomitant]
     Active Substance: PREDNISONE
     Indication: DRUG HYPERSENSITIVITY
  7. LEVOCETIRIZINE [Concomitant]
     Active Substance: LEVOCETIRIZINE
     Indication: DRUG HYPERSENSITIVITY

REACTIONS (1)
  - Drug-induced liver injury [Recovered/Resolved]
